FAERS Safety Report 21794512 (Version 45)
Quarter: 2024Q2

REPORT INFORMATION
  Report Type: Report from Study
  Country: US (occurrence: US)
  Receive Date: 20221229
  Receipt Date: 20240621
  Transmission Date: 20240716
  Serious: Yes (Other)
  Sender: FDA-Public Use
  Company Number: US-TAKEDA-2022TUS102369

PATIENT
  Age: 5 Year
  Sex: Female
  Weight: 18 kg

DRUGS (23)
  1. HUMAN IMMUNOGLOBULIN G [Suspect]
     Active Substance: HUMAN IMMUNOGLOBULIN G
     Indication: Immunodeficiency common variable
     Dosage: 3 GRAM, 1/WEEK
     Route: 058
     Dates: start: 20221208
  2. HUMAN IMMUNOGLOBULIN G [Suspect]
     Active Substance: HUMAN IMMUNOGLOBULIN G
     Dosage: 4 GRAM, 1/WEEK
     Route: 058
  3. HUMAN IMMUNOGLOBULIN G [Suspect]
     Active Substance: HUMAN IMMUNOGLOBULIN G
     Dosage: 4 GRAM
     Route: 058
  4. HUMAN IMMUNOGLOBULIN G [Suspect]
     Active Substance: HUMAN IMMUNOGLOBULIN G
     Dosage: 4 GRAM, Q2WEEKS
     Route: 058
  5. ACETAMINOPHEN [Concomitant]
     Active Substance: ACETAMINOPHEN
     Dosage: UNK
     Route: 065
  6. EPINEPHRINE [Concomitant]
     Active Substance: EPINEPHRINE
     Dosage: UNK
     Route: 065
  7. ACYCLOVIR [Concomitant]
     Active Substance: ACYCLOVIR
     Dosage: UNK
     Route: 065
  8. FLOVENT [Concomitant]
     Active Substance: FLUTICASONE PROPIONATE
     Dosage: UNK
     Route: 065
  9. ADDERALL [Concomitant]
     Active Substance: AMPHETAMINE ASPARTATE\AMPHETAMINE SULFATE\DEXTROAMPHETAMINE SACCHARATE\DEXTROAMPHETAMINE SULFATE
     Dosage: UNK
     Route: 065
  10. ZANTAC [Concomitant]
     Active Substance: RANITIDINE HYDROCHLORIDE
     Dosage: UNK
     Route: 065
  11. FAMOTIDINE [Concomitant]
     Active Substance: FAMOTIDINE
     Dosage: UNK
     Route: 065
  12. MUPIROCIN [Concomitant]
     Active Substance: MUPIROCIN
     Dosage: UNK
     Route: 065
  13. ALBUTEROL SULFATE [Concomitant]
     Active Substance: ALBUTEROL SULFATE
     Dosage: UNK
     Route: 065
  14. AMOXICILLIN [Concomitant]
     Active Substance: AMOXICILLIN
     Dosage: UNK
     Route: 065
  15. PULMICORT TURBUHALER [Concomitant]
     Active Substance: BUDESONIDE
     Dosage: UNK
     Route: 065
  16. CETIRIZINE HYDROCHLORIDE [Concomitant]
     Active Substance: CETIRIZINE HYDROCHLORIDE
     Dosage: UNK
     Route: 065
  17. IPRATROPIUM BROMIDE [Concomitant]
     Active Substance: IPRATROPIUM BROMIDE\IPRATROPIUM BROMIDE ANHYDROUS
     Dosage: UNK
     Route: 065
  18. Lmx [Concomitant]
     Dosage: UNK
     Route: 065
  19. DIPHENHYDRAMINE [Concomitant]
     Active Substance: DIPHENHYDRAMINE
     Dosage: UNK
     Route: 065
  20. BUDESONIDE [Concomitant]
     Active Substance: BUDESONIDE
     Dosage: UNK
     Route: 065
  21. Norditropine Flexpro [Concomitant]
     Dosage: UNK
     Route: 065
  22. CEFDINIR [Concomitant]
     Active Substance: CEFDINIR
     Dosage: UNK
     Route: 065
  23. ALBUTEROL SULFATE [Concomitant]
     Active Substance: ALBUTEROL SULFATE

REACTIONS (46)
  - Pseudomonas infection [Unknown]
  - Pneumonia staphylococcal [Unknown]
  - Pneumococcal infection [Recovering/Resolving]
  - Facial paralysis [Unknown]
  - Streptococcal infection [Unknown]
  - Respiratory tract infection [Not Recovered/Not Resolved]
  - Gastroenteritis viral [Unknown]
  - Dysphagia [Unknown]
  - Productive cough [Not Recovered/Not Resolved]
  - Moraxella infection [Unknown]
  - Gastrointestinal infection [Unknown]
  - Culture positive [Unknown]
  - Body temperature abnormal [Recovering/Resolving]
  - Dyskinesia [Recovering/Resolving]
  - Infusion site discharge [Unknown]
  - Heart rate abnormal [Recovering/Resolving]
  - Infusion site irritation [Unknown]
  - Insurance issue [Unknown]
  - Infusion related reaction [Unknown]
  - Illness [Unknown]
  - Upper respiratory tract infection [Unknown]
  - Nasal discharge discolouration [Unknown]
  - Influenza [Recovering/Resolving]
  - Ear pain [Unknown]
  - Ear infection [Unknown]
  - Nasal congestion [Unknown]
  - Muscular weakness [Recovering/Resolving]
  - Wheezing [Recovering/Resolving]
  - Injection site swelling [Unknown]
  - Agitation [Unknown]
  - Oedema peripheral [Unknown]
  - Flushing [Unknown]
  - Rash [Unknown]
  - Cough [Not Recovered/Not Resolved]
  - Oedema [Unknown]
  - Lethargy [Recovering/Resolving]
  - Infusion site oedema [Unknown]
  - Vomiting [Not Recovered/Not Resolved]
  - Pyrexia [Not Recovered/Not Resolved]
  - Infusion site erythema [Unknown]
  - Nausea [Unknown]
  - Fatigue [Unknown]
  - Diarrhoea [Unknown]
  - Rhinorrhoea [Unknown]
  - Product dose omission issue [Unknown]
  - Product use issue [Unknown]

NARRATIVE: CASE EVENT DATE: 20230228
